FAERS Safety Report 24063395 (Version 3)
Quarter: 2024Q3

REPORT INFORMATION
  Report Type: Spontaneous
  Country: RU (occurrence: RU)
  Receive Date: 20240709
  Receipt Date: 20240723
  Transmission Date: 20241017
  Serious: Yes (Other)
  Sender: ORGANON
  Company Number: RU-ORGANON-O2407RUS000373

PATIENT
  Age: 42 Year
  Sex: Female
  Weight: 57 kg

DRUGS (2)
  1. CORIFOLLITROPIN ALFA [Suspect]
     Active Substance: CORIFOLLITROPIN ALFA
     Indication: Ovulation induction
     Dosage: UNK
  2. ORGALUTRAN [Suspect]
     Active Substance: GANIRELIX ACETATE
     Indication: Ovulation induction
     Dosage: UNK

REACTIONS (15)
  - Oocyte harvest [Unknown]
  - Angiomyolipoma [Unknown]
  - Oophoritis [Unknown]
  - Ovarian hyperfunction [Recovered/Resolved]
  - Adnexa uteri pain [Unknown]
  - Ovarian cyst [Unknown]
  - Cough [Unknown]
  - Pruritus [Unknown]
  - Scab [Unknown]
  - Insomnia [Not Recovered/Not Resolved]
  - Skin exfoliation [Unknown]
  - Ovarian enlargement [Unknown]
  - Oligomenorrhoea [Unknown]
  - Feeling cold [Recovered/Resolved]
  - Prescribed overdose [Unknown]

NARRATIVE: CASE EVENT DATE: 20200101
